FAERS Safety Report 4517235-X (Version None)
Quarter: 2004Q4

REPORT INFORMATION
  Report Type: 
  Country: None (occurrence: None)
  Receive Date: 20041130
  Receipt Date: 20041109
  Transmission Date: 20050328
  Serious: Yes (Hospitalization)
  Sender: FDA-Public Use
  Company Number: EWC041141438

PATIENT
  Age: 1 Day
  Sex: Male

DRUGS (1)
  1. PROZAC [Suspect]
     Dates: end: 20040928

REACTIONS (6)
  - DRUG EXPOSURE DURING PREGNANCY [None]
  - FEELING JITTERY [None]
  - GASTROOESOPHAGEAL REFLUX DISEASE [None]
  - MOANING [None]
  - OXYGEN SATURATION DECREASED [None]
  - RETCHING [None]
